FAERS Safety Report 8112696-1 (Version None)
Quarter: 2012Q1

REPORT INFORMATION
  Report Type: 
  Country: None (occurrence: None)
  Receive Date: 20120203
  Receipt Date: 20120202
  Transmission Date: 20120608
  Serious: Yes (Other)
  Sender: FDA-Public Use
  Company Number: US-PFIZER INC-2012008007

PATIENT
  Sex: Male

DRUGS (3)
  1. LYRICA [Suspect]
     Indication: FIBROMYALGIA
     Dosage: 75 MG, 2X/DAY
     Route: 048
     Dates: start: 20100101, end: 20110101
  2. NAPROXEN [Concomitant]
     Indication: HYPOTONIA
     Dosage: 500 MG, AS NEEDED (1 AS NEEDED)
     Dates: start: 20100101
  3. LISINOPRIL [Concomitant]
     Indication: HYPERTENSION
     Dosage: 10 MG, 1X/DAY
     Dates: start: 20090101

REACTIONS (5)
  - INSOMNIA [None]
  - ARTHRALGIA [None]
  - DISTURBANCE IN ATTENTION [None]
  - PAIN [None]
  - FATIGUE [None]
